FAERS Safety Report 7756663-6 (Version None)
Quarter: 2011Q3

REPORT INFORMATION
  Report Type: 
  Country: None (occurrence: None)
  Receive Date: 20110916
  Receipt Date: 20110915
  Transmission Date: 20111222
  Serious: Yes (Life-Threatening, Hospitalization)
  Sender: FDA-Public Use
  Company Number: PHHY2011UY82006

PATIENT
  Sex: Male

DRUGS (3)
  1. EXJADE [Suspect]
     Route: 048
  2. MITOXANTRONE [Concomitant]
  3. CYTARABINE [Concomitant]

REACTIONS (3)
  - WRONG TECHNIQUE IN DRUG USAGE PROCESS [None]
  - NEUROGENIC SHOCK [None]
  - PULSE ABSENT [None]
